FAERS Safety Report 5097008-2 (Version None)
Quarter: 2006Q3

REPORT INFORMATION
  Report Type: 
  Country: None (occurrence: None)
  Receive Date: 20060906
  Receipt Date: 20060830
  Transmission Date: 20061208
  Serious: Yes (Death)
  Sender: FDA-Public Use
  Company Number: PHBS2006JP13212

PATIENT
  Age: 33 Year
  Sex: Female
  Weight: 90.2 kg

DRUGS (13)
  1. CARBAMAZEPINE [Suspect]
  2. NITRAZEPAM [Concomitant]
  3. TRIHEXYPHENIDYL HCL [Concomitant]
  4. PROMETHAZINE [Concomitant]
  5. LEVOMEPROMAZINE [Concomitant]
  6. HALOPERIDOL [Concomitant]
  7. FLUVOXAMINE MALEATE [Concomitant]
  8. ETIZOLAM [Concomitant]
  9. LITHIUM [Concomitant]
  10. BROMAZEPAM [Concomitant]
  11. MECOBALAMIN [Concomitant]
  12. OXYBUTYNIN HYDROCHLORIDE [Concomitant]
  13. PROPIVERINE [Concomitant]

REACTIONS (12)
  - BIOPSY HEART ABNORMAL [None]
  - CARDIO-RESPIRATORY ARREST [None]
  - DRUG LEVEL INCREASED [None]
  - HEPATIC CONGESTION [None]
  - LOSS OF CONSCIOUSNESS [None]
  - LYMPHOCYTIC INFILTRATION [None]
  - MYOCARDIAL FIBROSIS [None]
  - MYOCARDITIS [None]
  - OVERDOSE [None]
  - PULMONARY CONGESTION [None]
  - PULMONARY OEDEMA [None]
  - RENAL DISORDER [None]
